FAERS Safety Report 16027237 (Version 1)
Quarter: 2019Q1

REPORT INFORMATION
  Report Type: Report from Study
  Country: None (occurrence: US)
  Receive Date: 20190303
  Receipt Date: 20190303
  Transmission Date: 20190418
  Serious: Yes (Hospitalization, Other)
  Sender: FDA-Public Use
  Company Number: US-ABBVIE-19K-163-2684003-00

PATIENT
  Sex: Female

DRUGS (1)
  1. HUMIRA [Suspect]
     Active Substance: ADALIMUMAB
     Indication: COLITIS ULCERATIVE
     Dosage: CITRATE FREE HUMIRA
     Route: 058
     Dates: start: 201901, end: 201902

REACTIONS (4)
  - Drug ineffective [Unknown]
  - Campylobacter infection [Recovered/Resolved]
  - Hospitalisation [Recovered/Resolved]
  - Aortic thrombosis [Unknown]

NARRATIVE: CASE EVENT DATE: 2019
